FAERS Safety Report 7116720-4 (Version None)
Quarter: 2010Q4

REPORT INFORMATION
  Report Type: 
  Country: None (occurrence: None)
  Receive Date: 20101122
  Receipt Date: 20101115
  Transmission Date: 20110411
  Serious: Yes (Other)
  Sender: FDA-Public Use
  Company Number: US-TEVA-255491USA

PATIENT
  Age: 41 Year
  Sex: Female

DRUGS (1)
  1. OXCARBAZEPINE [Suspect]
     Route: 048

REACTIONS (3)
  - ATRIOVENTRICULAR DISSOCIATION [None]
  - NODAL RHYTHM [None]
  - OVERDOSE [None]
